FAERS Safety Report 9451666 (Version 1)
Quarter: 2013Q3

REPORT INFORMATION
  Report Type: Spontaneous
  Country: US (occurrence: US)
  Receive Date: 20130812
  Receipt Date: 20130812
  Transmission Date: 20140515
  Serious: No
  Sender: FDA-Public Use
  Company Number: US-009507513-1308USA003064

PATIENT
  Age: 55 Year
  Sex: Male

DRUGS (1)
  1. PROVENTIL [Suspect]
     Indication: DYSPNOEA
     Dosage: 1-2 PUFFS/0-3 TIMES A DAY
     Route: 055
     Dates: start: 200808

REACTIONS (1)
  - Dyspnoea [Not Recovered/Not Resolved]
